FAERS Safety Report 24772928 (Version 1)
Quarter: 2024Q4

REPORT INFORMATION
  Report Type: Spontaneous
  Country: US (occurrence: US)
  Receive Date: 20241225
  Receipt Date: 20241225
  Transmission Date: 20250115
  Serious: No
  Sender: NOBELPHARMA AMERICA, LLC
  Company Number: US-Nobelpharma America, LLC-NPA-2024-02146

PATIENT
  Age: 18 Year
  Sex: Male
  Weight: 55.9 kg

DRUGS (1)
  1. HYFTOR [Suspect]
     Active Substance: SIROLIMUS
     Indication: Benign neoplasm of skin
     Dosage: ^APPLY 1/2 INCH TOPICALLY AA BID (MDD 1INCH)^
     Route: 061
     Dates: start: 20241008

REACTIONS (2)
  - Skin burning sensation [Unknown]
  - Off label use [Unknown]

NARRATIVE: CASE EVENT DATE: 20241209
